FAERS Safety Report 23388861 (Version 2)
Quarter: 2024Q1

REPORT INFORMATION
  Report Type: Spontaneous
  Country: IN (occurrence: IN)
  Receive Date: 20240110
  Receipt Date: 20240212
  Transmission Date: 20240410
  Serious: Yes (Death)
  Sender: FDA-Public Use
  Company Number: IN-002147023-NVSC2024IN005115

PATIENT
  Age: 60 Year
  Sex: Female

DRUGS (3)
  1. CAPMATINIB [Suspect]
     Active Substance: CAPMATINIB
     Indication: Lung adenocarcinoma
     Dosage: 400 MG (200 MG IN MORNING AND 200 MG IN THE EVENING)
     Route: 048
     Dates: start: 20230714
  2. CAPMATINIB [Suspect]
     Active Substance: CAPMATINIB
     Dosage: 1 TABLET IN MORNING AND 2 TABLETS IN THE EVENING.
     Route: 065
  3. PAN [Concomitant]
     Indication: Gastrooesophageal reflux disease
     Dosage: UNK (STRENGTH: 40 UNITS UNSPECIFIED))
     Route: 065

REACTIONS (1)
  - Pulmonary fibrosis [Fatal]
